FAERS Safety Report 4399928-0 (Version None)
Quarter: 2004Q3

REPORT INFORMATION
  Report Type: 
  Country: None (occurrence: None)
  Receive Date: 20040714
  Receipt Date: 20040622
  Transmission Date: 20050211
  Serious: Yes (Hospitalization, Other)
  Sender: FDA-Public Use
  Company Number: JP_040503130

PATIENT
  Age: 60 Year
  Sex: Female
  Weight: 47 kg

DRUGS (5)
  1. ONCOVIN [Suspect]
     Indication: MULTIPLE MYELOMA
     Dosage: 1.3 MG; OTHER
     Route: 050
     Dates: start: 20030417, end: 20030417
  2. RANIMUSTINE [Concomitant]
  3. MELPHALAN [Concomitant]
  4. DEXAMETHASONE [Concomitant]
  5. ... [Concomitant]

REACTIONS (15)
  - ASCITES [None]
  - BLOOD CREATINE PHOSPHOKINASE INCREASED [None]
  - COLONIC STENOSIS [None]
  - GASTROINTESTINAL EROSION [None]
  - GASTROINTESTINAL TRACT MUCOSAL DISCOLOURATION [None]
  - ILEUS [None]
  - INTESTINAL DILATATION [None]
  - INTESTINAL GANGRENE [None]
  - INTESTINAL ISCHAEMIA [None]
  - INTESTINAL ULCER [None]
  - PANCREATITIS [None]
  - PERITONITIS [None]
  - POST PROCEDURAL COMPLICATION [None]
  - THERAPY NON-RESPONDER [None]
  - WHITE BLOOD CELL COUNT INCREASED [None]
